FAERS Safety Report 18474755 (Version 1)
Quarter: 2020Q4

REPORT INFORMATION
  Report Type: Spontaneous
  Country: IT (occurrence: IT)
  Receive Date: 20201106
  Receipt Date: 20201106
  Transmission Date: 20210114
  Serious: Yes (Death, Hospitalization)
  Sender: FDA-Public Use
  Company Number: IT-TEVA-2020-IT-1846071

PATIENT
  Age: 55 Year
  Sex: Female

DRUGS (4)
  1. PAZOPANIB [Suspect]
     Active Substance: PAZOPANIB
     Indication: SPINDLE CELL SARCOMA
     Route: 065
     Dates: start: 201910
  2. GEMCITABINE. [Suspect]
     Active Substance: GEMCITABINE
     Indication: SPINDLE CELL SARCOMA
     Route: 065
  3. ZOLEDRONIC ACID [Concomitant]
     Active Substance: ZOLEDRONIC ACID
     Indication: SPINDLE CELL SARCOMA
     Route: 065
  4. GEMCITABINE. [Suspect]
     Active Substance: GEMCITABINE
     Dosage: GEMCITABINE THERAPY WAS RESTARTED AFTER 1 MONTH OF DISCONTINUATION
     Route: 065

REACTIONS (3)
  - Cardio-respiratory arrest [Fatal]
  - Cardiac failure acute [Fatal]
  - Ejection fraction decreased [Fatal]
